FAERS Safety Report 5827565-7 (Version None)
Quarter: 2008Q3

REPORT INFORMATION
  Report Type: 
  Country: None (occurrence: None)
  Receive Date: 20080730
  Receipt Date: 20080724
  Transmission Date: 20090109
  Serious: Yes (Death)
  Sender: FDA-Public Use
  Company Number: ES-ASTRAZENECA-2008AC01837

PATIENT
  Age: 12 Year
  Sex: Female
  Weight: 67 kg

DRUGS (10)
  1. MEROPENEM [Suspect]
     Indication: INFECTION
     Route: 042
  2. VALPROIC ACID [Interacting]
     Indication: MYOCLONIC EPILEPSY
  3. CLONAZEPAM [Concomitant]
  4. FENITOINA [Concomitant]
  5. CHLORAL HYDRATE [Concomitant]
  6. PIRACETAM [Concomitant]
  7. VANCOMYCIN [Concomitant]
  8. AMIKACIN [Concomitant]
  9. REMIFENTANILE [Concomitant]
  10. PROPOFOL [Concomitant]

REACTIONS (4)
  - ANTICONVULSANT DRUG LEVEL DECREASED [None]
  - DRUG INTERACTION [None]
  - GRAND MAL CONVULSION [None]
  - SEPTIC SHOCK [None]
